FAERS Safety Report 7232513-1 (Version None)
Quarter: 2011Q1

REPORT INFORMATION
  Report Type: 
  Country: None (occurrence: None)
  Receive Date: 20110107
  Receipt Date: 20101222
  Transmission Date: 20110831
  Serious: Yes (Death, Hospitalization, Other)
  Sender: FDA-Public Use
  Company Number: ALA_00626_2010

PATIENT
  Sex: Female
  Weight: 72 kg

DRUGS (18)
  1. REGLAN [Suspect]
     Indication: NAUSEA
     Dosage: (10 MG BID ORAL), (5 MG BID ORAL)
     Route: 048
     Dates: start: 20060622
  2. REGLAN [Suspect]
     Indication: VOMITING
     Dosage: (10 MG BID ORAL), (5 MG BID ORAL)
     Route: 048
     Dates: start: 20060622
  3. REGLAN [Suspect]
     Indication: NAUSEA
     Dosage: (10 MG BID ORAL), (5 MG BID ORAL)
     Route: 048
     Dates: start: 20041101, end: 20060801
  4. REGLAN [Suspect]
     Indication: VOMITING
     Dosage: (10 MG BID ORAL), (5 MG BID ORAL)
     Route: 048
     Dates: start: 20041101, end: 20060801
  5. LIPITOR [Concomitant]
  6. TRAZODONE [Concomitant]
  7. HYDROCODONE BITARTRATE AND ACETAMINOPHEN [Concomitant]
  8. LORAZEPAM [Concomitant]
  9. VITAMIN B COMPLEX /06442901/ [Concomitant]
  10. DIATX /01502401/ [Concomitant]
  11. RENAGEL [Concomitant]
  12. ASPIRIN [Concomitant]
  13. PAXIL [Concomitant]
  14. PROMETHAZINE [Concomitant]
  15. AMITRIPTYLINE HCL [Concomitant]
  16. NORVASC [Concomitant]
  17. QUININE [Concomitant]
  18. BENADRYL [Concomitant]

REACTIONS (16)
  - GAIT DISTURBANCE [None]
  - STATUS EPILEPTICUS [None]
  - DRY SKIN [None]
  - AKATHISIA [None]
  - PANCYTOPENIA [None]
  - EXTRAPYRAMIDAL DISORDER [None]
  - ECONOMIC PROBLEM [None]
  - EMOTIONAL DISORDER [None]
  - ANXIETY [None]
  - IMMUNOSUPPRESSION [None]
  - CONFUSIONAL STATE [None]
  - TARDIVE DYSKINESIA [None]
  - HYPERKERATOSIS [None]
  - RESPIRATORY FAILURE [None]
  - BACTERIAL SEPSIS [None]
  - HYPERAMMONAEMIA [None]
